FAERS Safety Report 6876326-9 (Version None)
Quarter: 2010Q3

REPORT INFORMATION
  Report Type: 
  Country: None (occurrence: None)
  Receive Date: 20100727
  Receipt Date: 20070702
  Transmission Date: 20110219
  Serious: Yes (Death, Other)
  Sender: FDA-Public Use
  Company Number: US-PFIZER INC-2006107236

PATIENT
  Sex: Female
  Weight: 76.2 kg

DRUGS (2)
  1. CELEBREX [Suspect]
     Indication: ARTHRALGIA
     Route: 048
     Dates: start: 19990515, end: 20040823
  2. VIOXX [Suspect]
     Indication: ARTHRALGIA
     Dosage: 25MG AND 50MG,ONCE A DAY
     Route: 048
     Dates: start: 20000101, end: 20040829

REACTIONS (1)
  - CEREBROVASCULAR ACCIDENT [None]
